FAERS Safety Report 5237924-1 (Version None)
Quarter: 2007Q1

REPORT INFORMATION
  Report Type: 
  Country: None (occurrence: None)
  Receive Date: 20070209
  Receipt Date: 20070201
  Transmission Date: 20070707
  Serious: Yes (Other)
  Sender: FDA-Public Use
  Company Number: 430002N07FRA

PATIENT
  Age: 45 Year
  Sex: Female

DRUGS (3)
  1. NOVANTRONE [Suspect]
     Dosage: SEE IMAGE
     Route: 042
     Dates: start: 20061009, end: 20061009
  2. NOVANTRONE [Suspect]
     Dosage: SEE IMAGE
     Route: 042
     Dates: start: 20061207, end: 20061207
  3. VENLAFAXINE HYDROCHLORIDE [Concomitant]

REACTIONS (1)
  - NEUTROPENIA [None]
